FAERS Safety Report 13531985 (Version 8)
Quarter: 2017Q3

REPORT INFORMATION
  Report Type: Spontaneous
  Country: JP (occurrence: JP)
  Receive Date: 20170510
  Receipt Date: 20170912
  Transmission Date: 20171127
  Serious: Yes (Hospitalization, Other)
  Sender: FDA-Public Use
  Company Number: JP-GLAXOSMITHKLINE-JP2017JPN066970

PATIENT
  Age: 71 Year
  Sex: Female
  Weight: 51 kg

DRUGS (12)
  1. CELECOX [Concomitant]
     Active Substance: CELECOXIB
     Indication: SPINAL COMPRESSION FRACTURE
     Dosage: UNK, PRN
  2. REQUIP [Suspect]
     Active Substance: ROPINIROLE HYDROCHLORIDE
     Indication: PARKINSON^S DISEASE
     Dosage: UNK
     Route: 048
     Dates: start: 20170412, end: 20170501
  3. DOMPERIDONE [Concomitant]
     Active Substance: DOMPERIDONE
     Indication: PROPHYLAXIS OF NAUSEA AND VOMITING
     Dosage: UNK UNK, BID
  4. TRERIEF [Concomitant]
     Active Substance: ZONISAMIDE
     Indication: PARKINSON^S DISEASE
     Dosage: UNK UNK, QD
     Dates: start: 20170120
  5. LANDSEN [Concomitant]
     Active Substance: CLONAZEPAM
     Indication: DYSTONIA
     Dosage: UNK UNK, BID
     Dates: start: 20170124
  6. MAGMITT [Concomitant]
     Active Substance: MAGNESIUM OXIDE
     Indication: CONSTIPATION
     Dosage: UNK UNK, BID
  7. REBAMIPIDE [Concomitant]
     Active Substance: REBAMIPIDE
     Indication: PROPHYLAXIS AGAINST GASTROINTESTINAL ULCER
     Dosage: UNK, PRN
  8. STALEVO [Concomitant]
     Active Substance: CARBIDOPA\ENTACAPONE\LEVODOPA
     Indication: PARKINSON^S DISEASE
     Dosage: UNK UNK, TID
  9. ETIZOLAM [Concomitant]
     Active Substance: ETIZOLAM
     Indication: INSOMNIA
     Dosage: UNK, PRN
  10. PATELL [Concomitant]
     Indication: SPINAL COMPRESSION FRACTURE
     Dosage: 2 DF, 1D
  11. AMLODIPINE [Concomitant]
     Active Substance: AMLODIPINE BESYLATE
     Indication: HYPERTENSION
     Dosage: UNK UNK, QD
  12. ARTANE [Concomitant]
     Active Substance: TRIHEXYPHENIDYL HYDROCHLORIDE
     Indication: PARKINSON^S DISEASE
     Dosage: UNK UNK, QD
     Dates: start: 20170119

REACTIONS (15)
  - Mental impairment [Unknown]
  - Hyperthermia [Unknown]
  - Wheelchair user [Unknown]
  - Subarachnoid haemorrhage [Recovered/Resolved with Sequelae]
  - Cerebral ventricle dilatation [Recovered/Resolved with Sequelae]
  - Gait disturbance [Unknown]
  - Pneumonia aspiration [Unknown]
  - Hydrocephalus [Recovered/Resolved with Sequelae]
  - Headache [Recovered/Resolved]
  - Dysphagia [Unknown]
  - Restlessness [Recovered/Resolved]
  - Hypernatraemia [Unknown]
  - Tongue movement disturbance [Unknown]
  - Dry mouth [Unknown]
  - Altered state of consciousness [Recovering/Resolving]

NARRATIVE: CASE EVENT DATE: 20170430
